FAERS Safety Report 7084150-X (Version None)
Quarter: 2010Q4

REPORT INFORMATION
  Report Type: 
  Country: None (occurrence: None)
  Receive Date: 20101104
  Receipt Date: 20101021
  Transmission Date: 20110411
  Serious: Yes (Other)
  Sender: FDA-Public Use
  Company Number: DE-AMGEN-DEUCT2010000916

PATIENT

DRUGS (7)
  1. ENBREL [Suspect]
     Indication: RHEUMATOID ARTHRITIS
     Dosage: 50 MG, QWK
     Route: 058
     Dates: start: 20100222
  2. ARCOXIA [Concomitant]
  3. OMEPRAZOLE [Concomitant]
  4. CYMBALTA [Concomitant]
  5. METOHEXAL [Concomitant]
  6. PREDNISOLONE [Concomitant]
     Dosage: 5 MG
  7. ORTOTON [Concomitant]

REACTIONS (2)
  - COLITIS [None]
  - COLON ADENOMA [None]
